FAERS Safety Report 9790614 (Version 4)
Quarter: 2014Q1

REPORT INFORMATION
  Report Type: Spontaneous
  Country: US (occurrence: US)
  Receive Date: 20131231
  Receipt Date: 20140228
  Transmission Date: 20141002
  Serious: No
  Sender: FDA-Public Use
  Company Number: US-PFIZER INC-2013371515

PATIENT
  Sex: Male

DRUGS (2)
  1. LYRICA [Suspect]
     Indication: BONE PAIN
     Dosage: UNK
  2. LYRICA [Suspect]
     Indication: PAIN

REACTIONS (2)
  - Reaction to drug excipients [Unknown]
  - Chest discomfort [Unknown]
